FAERS Safety Report 9602177 (Version 3)
Quarter: 2013Q4

REPORT INFORMATION
  Report Type: Spontaneous
  Country: US (occurrence: US)
  Receive Date: 20131007
  Receipt Date: 20131116
  Transmission Date: 20140711
  Serious: No
  Sender: FDA-Public Use
  Company Number: US-009507513-1310USA000836

PATIENT
  Age: 60 Year
  Sex: Male
  Weight: 83.6 kg

DRUGS (1)
  1. PEGINTRON [Suspect]
     Indication: HEPATITIS C
     Dosage: PEGINTRON REDIPEN, 150 MICROGRAM, QW
     Route: 058
     Dates: start: 20130906

REACTIONS (3)
  - Depression [Recovered/Resolved]
  - Chills [Not Recovered/Not Resolved]
  - Nausea [Not Recovered/Not Resolved]
